FAERS Safety Report 9720505 (Version 8)
Quarter: 2014Q4

REPORT INFORMATION
  Report Type: Report from Study
  Country: FR (occurrence: FR)
  Receive Date: 20131129
  Receipt Date: 20141031
  Transmission Date: 20150529
  Serious: Yes (Other)
  Sender: FDA-Public Use
  Company Number: FR-JNJFOC-20131109099

PATIENT
  Sex: Male

DRUGS (6)
  1. RISPERDAL CONSTA [Suspect]
     Active Substance: RISPERIDONE
     Indication: PRODUCT USED FOR UNKNOWN INDICATION
     Route: 030
     Dates: start: 201401
  2. ZYPREXA [Suspect]
     Active Substance: OLANZAPINE
     Indication: PRODUCT USED FOR UNKNOWN INDICATION
     Route: 065
  3. SOLIAN [Suspect]
     Active Substance: AMISULPRIDE
     Indication: PRODUCT USED FOR UNKNOWN INDICATION
     Route: 065
  4. RISPERDAL [Suspect]
     Active Substance: RISPERIDONE
     Indication: PRODUCT USED FOR UNKNOWN INDICATION
     Route: 065
  5. XEPLION [Suspect]
     Active Substance: PALIPERIDONE PALMITATE
     Indication: PRODUCT USED FOR UNKNOWN INDICATION
     Route: 030
  6. HALDOL [Suspect]
     Active Substance: HALOPERIDOL
     Indication: PRODUCT USED FOR UNKNOWN INDICATION
     Route: 065

REACTIONS (16)
  - Spermatozoa abnormal [Unknown]
  - Fatigue [Recovering/Resolving]
  - General physical health deterioration [Unknown]
  - Loss of libido [Unknown]
  - Ejaculation failure [Unknown]
  - Dyskinesia [Unknown]
  - Psychiatric symptom [Unknown]
  - Gastric disorder [Unknown]
  - Breast disorder [Unknown]
  - Abdominal distension [Not Recovered/Not Resolved]
  - Epilepsy [Unknown]
  - Torticollis [Recovering/Resolving]
  - Weight increased [Not Recovered/Not Resolved]
  - Listless [Unknown]
  - Delusion [Recovering/Resolving]
  - Hallucination [Recovering/Resolving]
